FAERS Safety Report 7462566-7 (Version None)
Quarter: 2011Q2

REPORT INFORMATION
  Report Type: 
  Country: None (occurrence: None)
  Receive Date: 20110506
  Receipt Date: 20110502
  Transmission Date: 20111010
  Serious: Yes (Death)
  Sender: FDA-Public Use
  Company Number: ES-SANOFI-AVENTIS-200813326GDDC

PATIENT
  Age: 62 Year
  Sex: Male

DRUGS (13)
  1. MAGNESIA ^ACO^ [Concomitant]
     Dosage: DOSE AS USED: UNK
     Dates: start: 20080211
  2. DOCETAXEL [Suspect]
     Dosage: DOSE UNIT: 60 MG/M**2
     Route: 042
     Dates: start: 20080326, end: 20080326
  3. PREDNISONE TAB [Suspect]
     Dosage: DOSE UNIT: 5 MG
     Route: 048
  4. CARDURA [Concomitant]
     Dosage: DOSE AS USED: UNK
     Dates: start: 20080120
  5. HIBOR [Concomitant]
     Dates: start: 20080128, end: 20080201
  6. UROLOSIN [Concomitant]
     Dosage: DOSE AS USED: UNK
     Dates: start: 20071218
  7. DEPRAX [Concomitant]
     Dosage: DOSE AS USED: UNK
     Dates: start: 20080128
  8. DINISOR [Concomitant]
     Dosage: DOSE AS USED: UNK
  9. BECLOMETHASONE DIPROPIONATE [Concomitant]
     Dosage: DOSE AS USED: UNK
     Dates: start: 20080201
  10. AFLIBERCEPT [Suspect]
     Dosage: DOSE UNIT: 6 MG/KG
     Route: 042
     Dates: start: 20080303, end: 20080303
  11. PANTOPRAZOLE [Concomitant]
     Dosage: DOSE AS USED: UNK
     Dates: start: 20071218
  12. LIPITOR [Concomitant]
     Dosage: DOSE AS USED: UNK
  13. METOCLOPRAMIDE [Concomitant]
     Dosage: DOSE AS USED: UNK
     Dates: start: 20080129

REACTIONS (1)
  - EPISTAXIS [None]
